FAERS Safety Report 4335875-8 (Version None)
Quarter: 2004Q2

REPORT INFORMATION
  Report Type: 
  Country: None (occurrence: None)
  Receive Date: 20040405
  Receipt Date: 20040111
  Transmission Date: 20050107
  Serious: Yes (Hospitalization)
  Sender: FDA-Public Use
  Company Number: EMADSS2002004877

PATIENT
  Age: 77 Year
  Sex: Male
  Weight: 86 kg

DRUGS (8)
  1. GALANTAMINE (GALANTAMINE) UNSPECIFIED [Suspect]
     Indication: MEMORY IMPAIRMENT
     Dosage: 4 MG, 2 IN  1 DAY, ORAL
     Route: 048
     Dates: start: 20010724
  2. SOBRIL (OXAZEPAM) [Concomitant]
  3. CIPRAMIL (CITALOPRAM HYDROBROMIDE) [Concomitant]
  4. MOLLIPECT (MOLLIPECT) [Concomitant]
  5. ORSTANORM (DIHYDROEGRGOTAMINE MESILATE) [Concomitant]
  6. IBUMETIN (IBUPROFEN) [Concomitant]
  7. MARZINE (CYCLIZINE HYDROCHLORIDE) [Concomitant]
  8. MUCOMYST [Concomitant]

REACTIONS (3)
  - ANGINA PECTORIS [None]
  - BLOOD CREATININE INCREASED [None]
  - LUNG DISORDER [None]
